FAERS Safety Report 5040347-1 (Version None)
Quarter: 2006Q2

REPORT INFORMATION
  Report Type: 
  Country: None (occurrence: None)
  Receive Date: 20060601
  Receipt Date: 20060213
  Transmission Date: 20061013
  Serious: No
  Sender: FDA-Public Use
  Company Number: 2005PV000789

PATIENT
  Age: 65 Year
  Sex: Female
  Weight: 83.9154 kg

DRUGS (6)
  1. BYETTA [Suspect]
     Indication: DIABETES MELLITUS NON-INSULIN-DEPENDENT
     Dosage: SEE IMAGE
     Route: 058
     Dates: start: 20050822, end: 20050901
  2. BYETTA [Suspect]
     Indication: DIABETES MELLITUS NON-INSULIN-DEPENDENT
     Dosage: SEE IMAGE
     Route: 058
     Dates: start: 20050622
  3. BYETTA [Suspect]
     Indication: DIABETES MELLITUS NON-INSULIN-DEPENDENT
     Dosage: SEE IMAGE
     Route: 058
     Dates: start: 20050901
  4. ACTOPLUS MET [Concomitant]
  5. AMARYL [Concomitant]
  6. SYNTHROID [Concomitant]

REACTIONS (8)
  - BLOOD GLUCOSE DECREASED [None]
  - DEAFNESS [None]
  - DECREASED APPETITE [None]
  - DIZZINESS [None]
  - EYE PAIN [None]
  - NAUSEA [None]
  - PHOTOPHOBIA [None]
  - TREMOR [None]
